FAERS Safety Report 24391704 (Version 1)
Quarter: 2024Q4

REPORT INFORMATION
  Report Type: Spontaneous
  Country: US (occurrence: None)
  Receive Date: 20241002
  Receipt Date: 20241002
  Transmission Date: 20250115
  Serious: Yes (Hospitalization)
  Sender: Public
  Company Number: None

PATIENT
  Age: 84 Year
  Sex: Male
  Weight: 73 kg

DRUGS (5)
  1. CARVEDILOL [Suspect]
     Active Substance: CARVEDILOL
     Indication: Cardiac failure
     Dosage: FREQUENCY : TWICE A DAY;?
     Route: 048
     Dates: end: 20240305
  2. ATEZOLIZUMAB [Suspect]
     Active Substance: ATEZOLIZUMAB
  3. BUMETANIDE [Suspect]
     Active Substance: BUMETANIDE
  4. ENTRESTO [Suspect]
     Active Substance: SACUBITRIL\VALSARTAN
  5. EMPAGLIFLOZIN [Suspect]
     Active Substance: EMPAGLIFLOZIN

REACTIONS (2)
  - Dizziness [None]
  - Hypotension [None]

NARRATIVE: CASE EVENT DATE: 20240309
